FAERS Safety Report 10045660 (Version 2)
Quarter: 2014Q2

REPORT INFORMATION
  Report Type: Spontaneous
  Country: US (occurrence: US)
  Receive Date: 20140328
  Receipt Date: 20140410
  Transmission Date: 20141212
  Serious: Yes (Disabling)
  Sender: FDA-Public Use
  Company Number: US-MYLANLABS-2014S1006801

PATIENT
  Age: 49 Year
  Sex: Female

DRUGS (16)
  1. LEVOTHYROXINE SODIUM TABLETS, USP [Suspect]
     Indication: HYPOTHYROIDISM
     Route: 048
  2. LEVOTHYROXINE SODIUM TABLETS, USP [Suspect]
     Indication: HYPOTHYROIDISM
     Route: 048
  3. LEVOXYL [Suspect]
     Indication: HYPOTHYROIDISM
     Route: 048
  4. SYNTHROID [Suspect]
     Indication: HYPOTHYROIDISM
     Route: 048
  5. UNITHROID [Suspect]
     Indication: HYPOTHYROIDISM
     Route: 048
  6. AMITRIPTYLINE HYDROCHLORIDE TABLETS, USP [Suspect]
     Indication: IRRITABLE BOWEL SYNDROME
     Route: 048
     Dates: start: 2006, end: 2013
  7. AMITRIPTYLINE HYDROCHLORIDE TABLETS, USP [Suspect]
     Indication: COSTOCHONDRITIS
     Route: 048
     Dates: start: 2006, end: 2013
  8. AMITRIPTYLINE HYDROCHLORIDE TABLETS, USP [Suspect]
     Indication: FIBROMYALGIA
     Route: 048
     Dates: start: 2006, end: 2013
  9. AMITRIPTYLINE HYDROCHLORIDE TABLETS, USP [Suspect]
     Indication: IRRITABLE BOWEL SYNDROME
     Route: 048
     Dates: start: 2013, end: 2014
  10. AMITRIPTYLINE HYDROCHLORIDE TABLETS, USP [Suspect]
     Indication: COSTOCHONDRITIS
     Route: 048
     Dates: start: 2013, end: 2014
  11. AMITRIPTYLINE HYDROCHLORIDE TABLETS, USP [Suspect]
     Indication: FIBROMYALGIA
     Route: 048
     Dates: start: 2013, end: 2014
  12. AMITRIPTYLINE HYDROCHLORIDE TABLETS, USP [Suspect]
     Indication: IRRITABLE BOWEL SYNDROME
     Route: 048
     Dates: start: 2014
  13. AMITRIPTYLINE HYDROCHLORIDE TABLETS, USP [Suspect]
     Indication: COSTOCHONDRITIS
     Route: 048
     Dates: start: 2014
  14. AMITRIPTYLINE HYDROCHLORIDE TABLETS, USP [Suspect]
     Indication: FIBROMYALGIA
     Route: 048
     Dates: start: 2014
  15. NADOL /00480001/ [Concomitant]
     Indication: BLOOD PRESSURE
     Dates: end: 201307
  16. FLONASE /00908302/ [Concomitant]
     Indication: MULTIPLE ALLERGIES
     Dates: end: 201307

REACTIONS (11)
  - Fibromyalgia [Not Recovered/Not Resolved]
  - Pain [Not Recovered/Not Resolved]
  - Irritable bowel syndrome [Not Recovered/Not Resolved]
  - Facial pain [Not Recovered/Not Resolved]
  - Cellulitis [Not Recovered/Not Resolved]
  - Vision blurred [Not Recovered/Not Resolved]
  - Eye irritation [Not Recovered/Not Resolved]
  - Ocular hyperaemia [Not Recovered/Not Resolved]
  - Burning sensation [Not Recovered/Not Resolved]
  - Erythema [Not Recovered/Not Resolved]
  - Drug interaction [Not Recovered/Not Resolved]
